FAERS Safety Report 10063668 (Version 2)
Quarter: 2014Q2

REPORT INFORMATION
  Report Type: Spontaneous
  Country: FR (occurrence: FR)
  Receive Date: 20140407
  Receipt Date: 20140407
  Transmission Date: 20141212
  Serious: Yes (Hospitalization)
  Sender: FDA-Public Use
  Company Number: PHHY2014FR014945

PATIENT
  Age: 61 Year
  Sex: Female

DRUGS (4)
  1. ACLASTA [Suspect]
     Indication: OSTEOPOROSIS
     Dosage: 5 MG, UNK
     Route: 042
     Dates: start: 20131212
  2. LEVOTHYROX [Concomitant]
     Dosage: 75 UG, QD
     Route: 048
  3. ALPRAZOLAM [Concomitant]
     Dosage: 0.5 MG, QD
     Route: 048
  4. SEROPLEX [Concomitant]
     Dosage: 5 MG, QD
     Route: 048

REACTIONS (4)
  - Conjunctival hyperaemia [Recovered/Resolved]
  - Weight decreased [Recovering/Resolving]
  - Influenza like illness [Recovered/Resolved]
  - Bone pain [Recovered/Resolved]
